FAERS Safety Report 8508356-5 (Version None)
Quarter: 2012Q3

REPORT INFORMATION
  Report Type: 
  Country: None (occurrence: None)
  Receive Date: 20120713
  Receipt Date: 20120706
  Transmission Date: 20120928
  Serious: Yes (Hospitalization, Other)
  Sender: FDA-Public Use
  Company Number: PHHY2012JP002047

PATIENT
  Sex: Female
  Weight: 50 kg

DRUGS (21)
  1. LIPITOR [Concomitant]
     Dosage: 10 MG, UNK
     Route: 048
     Dates: start: 20101202
  2. CARVEDILOL [Concomitant]
     Dosage: 2.5 MG, UNK
     Route: 048
     Dates: start: 20100626
  3. CARVEDILOL [Concomitant]
     Dosage: 5 MG, UNK
     Route: 048
  4. TENAXIL [Concomitant]
     Indication: HYPERTENSION
     Dosage: 1 MG, UNK
     Route: 048
     Dates: start: 20070127, end: 20101016
  5. ADALAT CC [Concomitant]
     Indication: HYPERTENSION
     Dosage: 60 MG, UNK
     Route: 048
     Dates: start: 20061111
  6. OLMESARTAN MEDOXOMIL [Concomitant]
     Indication: HYPERTENSION
     Dosage: 20 MG, UNK
     Route: 048
     Dates: start: 20061111
  7. ALISKIREN [Suspect]
     Dosage: 150 MG, DAILY
     Route: 048
     Dates: start: 20110112, end: 20110208
  8. ACECOL [Concomitant]
     Indication: HYPERTENSION
     Dosage: 2 MG, UNK
     Route: 048
     Dates: start: 20061111
  9. DISOPYRAMIDE PHOSPHATE [Concomitant]
     Dosage: 300 MG, UNK
     Route: 048
     Dates: start: 20061111
  10. LANSOPRAZOLE [Concomitant]
     Dosage: 15 MG, UNK
     Route: 048
     Dates: start: 20071116, end: 20101016
  11. ALISKIREN [Suspect]
     Indication: HYPERTENSION
     Dosage: 150 MG, UNK
     Route: 048
     Dates: start: 20100310, end: 20100523
  12. DOXAZOSIN MESYLATE [Concomitant]
     Dosage: 2 MG, UNK
     Route: 048
     Dates: start: 20100626
  13. RADICUT [Concomitant]
     Dosage: 60 MG, UNK
     Route: 042
     Dates: start: 20101016, end: 20101023
  14. WARFARIN SODIUM [Concomitant]
     Dosage: 3.5 MG, UNK
     Route: 048
     Dates: start: 20101112
  15. EPLERENONE [Concomitant]
     Indication: HYPERTENSION
     Dosage: 50 MG, UNK
     Dates: start: 20091119, end: 20101016
  16. ALISKIREN [Suspect]
     Dosage: 300 MG, DAILY
     Route: 048
     Dates: start: 20100524, end: 20101016
  17. ALISKIREN [Suspect]
     Dosage: 300 MG, UNK
     Route: 048
     Dates: start: 20110209
  18. DOXAZOSIN MESYLATE [Concomitant]
     Indication: HYPERTENSION
     Dosage: 4 MG, UNK
     Route: 048
     Dates: start: 20090422
  19. MEILAX [Concomitant]
     Dosage: 2 MG, UNK
     Route: 048
     Dates: start: 20061111, end: 20101016
  20. DISOPYRAMIDE PHOSPHATE [Concomitant]
     Dosage: 300 MG, UNK
     Route: 048
     Dates: start: 20061111
  21. OPALMON [Concomitant]
     Dosage: 15 UG, UNK
     Route: 048
     Dates: start: 20061111, end: 20101016

REACTIONS (9)
  - HAEMOGLOBIN DECREASED [None]
  - DRUG INEFFECTIVE [None]
  - HAEMATOCRIT DECREASED [None]
  - CEREBRAL INFARCTION [None]
  - HEMIPARESIS [None]
  - BLOOD POTASSIUM DECREASED [None]
  - PARESIS [None]
  - DYSLALIA [None]
  - BLOOD PRESSURE DIASTOLIC DECREASED [None]
